FAERS Safety Report 11535324 (Version 1)
Quarter: 2015Q3

REPORT INFORMATION
  Report Type: Spontaneous
  Country: US (occurrence: None)
  Receive Date: 20150921
  Receipt Date: 20150921
  Transmission Date: 20151125
  Serious: No
  Sender: FDA-Public Use
  Company Number: None

PATIENT
  Age: 53 Year
  Sex: Male

DRUGS (2)
  1. HARVONI [Suspect]
     Active Substance: LEDIPASVIR\SOFOSBUVIR
     Indication: HEPATITIS C
     Dosage: 1  PILL  QD  ORAL
     Route: 048
     Dates: start: 20150904, end: 20150918
  2. DILANTIN/PHENYTOIN [Concomitant]

REACTIONS (1)
  - No adverse event [None]

NARRATIVE: CASE EVENT DATE: 20150918
